FAERS Safety Report 6433319-3 (Version None)
Quarter: 2009Q4

REPORT INFORMATION
  Report Type: 
  Country: None (occurrence: None)
  Receive Date: 20091109
  Receipt Date: 20091028
  Transmission Date: 20100525
  Serious: Yes (Hospitalization)
  Sender: FDA-Public Use
  Company Number: PHHY2009DE10166

PATIENT
  Age: 48 Year
  Sex: Male
  Weight: 80 kg

DRUGS (4)
  1. CARBAMAZEPINE [Suspect]
     Indication: EPILEPSY
     Dosage: 600MG
     Route: 048
  2. CARBAMAZEPINE [Suspect]
     Dosage: 300 MG, BID
     Route: 048
     Dates: start: 20090121
  3. ALLOPURINOL [Suspect]
     Indication: HYPERURICAEMIA
     Dosage: 150 MG DAILY
     Route: 048
  4. SIMVASTATIN [Suspect]
     Indication: HYPERCHOLESTEROLAEMIA
     Dosage: 20MG IN ONE DAY
     Route: 048

REACTIONS (12)
  - ANTICONVULSANT DRUG LEVEL INCREASED [None]
  - ANXIETY [None]
  - BLOOD FIBRINOGEN INCREASED [None]
  - BRONCHOPNEUMONIA [None]
  - C-REACTIVE PROTEIN INCREASED [None]
  - HYPOKALAEMIA [None]
  - NAUSEA [None]
  - OVERDOSE [None]
  - PERSONALITY DISORDER [None]
  - SINUS TACHYCARDIA [None]
  - VOMITING [None]
  - WHITE BLOOD CELL COUNT INCREASED [None]
